FAERS Safety Report 7084072-4 (Version None)
Quarter: 2010Q4

REPORT INFORMATION
  Report Type: 
  Country: None (occurrence: None)
  Receive Date: 20101104
  Receipt Date: 20100914
  Transmission Date: 20110411
  Serious: No
  Sender: FDA-Public Use
  Company Number: US-BAYER-201021278BCC

PATIENT
  Age: 82 Year
  Sex: Male
  Weight: 78 kg

DRUGS (19)
  1. ALEVE (CAPLET) [Suspect]
     Indication: HYPOAESTHESIA
     Dosage: UNIT DOSE: 220 MG
     Route: 048
     Dates: start: 20090101
  2. L-ARGININE [Concomitant]
     Route: 065
  3. TUMERIC [Concomitant]
     Route: 065
  4. BETA GLUTENS [Concomitant]
     Route: 065
  5. N-ACETYL-L-CYSTINE [Concomitant]
     Route: 065
  6. PURITAN PRIDE [Concomitant]
     Route: 065
  7. ALPHA LIPOIC ACID [Concomitant]
     Route: 065
  8. PAPAYA ENZYME [Concomitant]
     Route: 065
  9. TONALIN [Concomitant]
     Route: 065
  10. RED YEAST RICE [Concomitant]
     Route: 065
  11. NIACIN [Concomitant]
     Route: 065
  12. B12 VITAMINS [Concomitant]
     Route: 065
  13. SAW PALMETTO [Concomitant]
     Route: 065
  14. STINGING NETTLE [Concomitant]
     Route: 065
  15. GRAPEFRUIT PECTIN [Concomitant]
     Route: 065
  16. ASCORBIC ACID [Concomitant]
     Route: 065
  17. CO ENZYME 10 [Concomitant]
     Route: 065
  18. GARLIC [Concomitant]
     Route: 065
  19. LECITHIN [Concomitant]
     Route: 065

REACTIONS (2)
  - C-REACTIVE PROTEIN INCREASED [None]
  - HYPOAESTHESIA [None]
